FAERS Safety Report 8966288 (Version 1)
Quarter: 2012Q4

REPORT INFORMATION
  Report Type: 
  Country: US (occurrence: US)
  Receive Date: 20121217
  Receipt Date: 20121217
  Transmission Date: 20130627
  Serious: Yes (Other)
  Sender: FDA-Public Use
  Company Number: US-ROXANE LABORATORIES, INC.-2012-RO-02566RO

PATIENT
  Age: 52 Year
  Sex: Male

DRUGS (7)
  1. FLUTICASONE [Suspect]
     Indication: BRONCHITIS CHRONIC
     Route: 045
  2. FLUCONAZOLE [Suspect]
     Indication: OROPHARYNGEAL CANDIDIASIS
     Dosage: 400 mg
     Route: 048
  3. FLUTICASONE [Suspect]
     Indication: BRONCHITIS CHRONIC
     Dosage: 1000 mcg
     Route: 055
  4. RITONAVIR [Suspect]
     Indication: HIV INFECTION
  5. ATAZANAVIR [Suspect]
     Indication: HIV INFECTION
  6. EFAVIRENZ [Suspect]
     Indication: HIV INFECTION
  7. DILTIAZEM [Suspect]
     Indication: ESSENTIAL HYPERTENSION

REACTIONS (3)
  - Cushing^s syndrome [Recovered/Resolved]
  - Secondary adrenocortical insufficiency [Recovered/Resolved]
  - Oropharyngeal candidiasis [Recovered/Resolved]
